FAERS Safety Report 25429400 (Version 3)
Quarter: 2025Q3

REPORT INFORMATION
  Report Type: Spontaneous
  Country: GB (occurrence: GB)
  Receive Date: 20250612
  Receipt Date: 20250918
  Transmission Date: 20251021
  Serious: Yes (Other)
  Sender: PFIZER
  Company Number: GB-MLMSERVICE-20250530-PI527271-00218-1

PATIENT
  Age: 82 Year
  Sex: Female

DRUGS (1)
  1. METHOTREXATE SODIUM [Suspect]
     Active Substance: METHOTREXATE SODIUM
     Indication: Systemic lupus erythematosus
     Dosage: 20 MG, WEEKLY
     Route: 048

REACTIONS (4)
  - Epstein Barr virus positive mucocutaneous ulcer [Recovering/Resolving]
  - Epstein-Barr virus associated lymphoproliferative disorder [Recovering/Resolving]
  - Mouth ulceration [Recovering/Resolving]
  - Off label use [Unknown]
